FAERS Safety Report 7813342-4 (Version None)
Quarter: 2011Q4

REPORT INFORMATION
  Report Type: 
  Country: None (occurrence: None)
  Receive Date: 20111013
  Receipt Date: 20111010
  Transmission Date: 20120403
  Serious: Yes (Hospitalization, Disabling, Other)
  Sender: FDA-Public Use
  Company Number: US-AMGEN-USASP2011052270

PATIENT
  Sex: Male

DRUGS (3)
  1. XGEVA [Suspect]
     Indication: METASTASES TO BONE
     Dosage: UNK UNK, Q4WK
     Dates: start: 20110601
  2. XGEVA [Suspect]
  3. XGEVA [Suspect]

REACTIONS (7)
  - PAIN IN EXTREMITY [None]
  - ABASIA [None]
  - WALKING AID USER [None]
  - HYPOPHOSPHATAEMIA [None]
  - HYPOCALCAEMIA [None]
  - RADIATION SKIN INJURY [None]
  - MUSCLE INJURY [None]
